FAERS Safety Report 13234952 (Version 1)
Quarter: 2017Q1

REPORT INFORMATION
  Report Type: Spontaneous
  Country: US (occurrence: US)
  Receive Date: 20170215
  Receipt Date: 20170215
  Transmission Date: 20170428
  Serious: Yes (Other)
  Sender: FDA-Public Use
  Company Number: US-JNJFOC-20170212650

PATIENT
  Sex: Male

DRUGS (1)
  1. INVOKANA [Suspect]
     Active Substance: CANAGLIFLOZIN
     Indication: DIABETES MELLITUS
     Route: 048
     Dates: start: 20150206, end: 20150216

REACTIONS (4)
  - Cerebrovascular accident [Unknown]
  - Diabetic ketoacidosis [Unknown]
  - Renal injury [Unknown]
  - Acute myocardial infarction [Unknown]
